FAERS Safety Report 19990983 (Version 1)
Quarter: 2021Q4

REPORT INFORMATION
  Report Type: Spontaneous
  Country: US (occurrence: US)
  Receive Date: 20211025
  Receipt Date: 20211025
  Transmission Date: 20220304
  Serious: Yes (Other)
  Sender: FDA-Public Use
  Company Number: None

PATIENT
  Age: 94 Year
  Sex: Male
  Weight: 64.5 kg

DRUGS (1)
  1. BARICITINIB [Suspect]
     Active Substance: BARICITINIB
     Indication: COVID-19
     Route: 048
     Dates: start: 20211014, end: 20211019

REACTIONS (4)
  - Drug eruption [None]
  - Rash [None]
  - Skin abrasion [None]
  - Skin exfoliation [None]

NARRATIVE: CASE EVENT DATE: 20211019
